FAERS Safety Report 9185144 (Version 1)
Quarter: 2012Q4

REPORT INFORMATION
  Report Type: 
  Country: US (occurrence: US)
  Receive Date: 20121101
  Receipt Date: 20121101
  Transmission Date: 20130627
  Serious: No
  Sender: FDA-Public Use
  Company Number: US-PFIZER INC-2012271752

PATIENT
  Age: 50 Year
  Sex: Female

DRUGS (2)
  1. CHANTIX [Suspect]
     Dosage: UNK
     Dates: start: 200712, end: 200801
  2. CHANTIX [Suspect]
     Dosage: UNK
     Dates: start: 2009, end: 2009

REACTIONS (2)
  - Drug ineffective [Unknown]
  - Headache [Recovered/Resolved]
